FAERS Safety Report 8223426-7 (Version None)
Quarter: 2012Q1

REPORT INFORMATION
  Report Type: 
  Country: None (occurrence: None)
  Receive Date: 20120316
  Receipt Date: 20120306
  Transmission Date: 20120608
  Serious: Yes (Disabling)
  Sender: FDA-Public Use
  Company Number: 2011-4922

PATIENT

DRUGS (5)
  1. DYSPORT [Suspect]
     Indication: MUSCLE SPASTICITY
     Dosage: 1000 UNITS (1000 UNITS, SINGLE CYCLE), INTRAMUSCULAR
     Route: 030
     Dates: start: 20100707, end: 20100707
  2. VALIUM [Concomitant]
  3. CYMBALTA (FULOXETINE HYDROCHLORIDE) [Concomitant]
  4. LIORESAL [Concomitant]
  5. ASPIRIN [Concomitant]

REACTIONS (6)
  - DIPLOPIA [None]
  - VERTIGO [None]
  - NO REACTION ON PREVIOUS EXPOSURE TO DRUG [None]
  - OCULAR MYASTHENIA [None]
  - NAUSEA [None]
  - EYELID PTOSIS [None]
